FAERS Safety Report 20090496 (Version 1)
Quarter: 2021Q4

REPORT INFORMATION
  Report Type: Spontaneous
  Country: CA (occurrence: None)
  Receive Date: 20211118
  Receipt Date: 20211118
  Transmission Date: 20220303
  Serious: Yes (Disabling)
  Sender: FDA-Public Use
  Company Number: None

PATIENT
  Age: 23 Year
  Sex: Male
  Weight: 63 kg

DRUGS (1)
  1. FINASTERIDE [Suspect]
     Active Substance: FINASTERIDE
     Indication: Alopecia
     Dosage: OTHER QUANTITY : 1 TABLET(S);?FREQUENCY : DAILY;?
     Route: 048
     Dates: start: 20210101, end: 20210515

REACTIONS (6)
  - Blood testosterone decreased [None]
  - Semen volume decreased [None]
  - Sperm concentration decreased [None]
  - Libido decreased [None]
  - Apathy [None]
  - Fatigue [None]

NARRATIVE: CASE EVENT DATE: 20210101
